FAERS Safety Report 7403677-1 (Version None)
Quarter: 2011Q2

REPORT INFORMATION
  Report Type: 
  Country: None (occurrence: None)
  Receive Date: 20110408
  Receipt Date: 20110328
  Transmission Date: 20111010
  Serious: Yes (Other)
  Sender: FDA-Public Use
  Company Number: PHHY2011GB24979

PATIENT
  Age: 60 Year
  Sex: Male
  Weight: 77 kg

DRUGS (6)
  1. ATORVASTATIN CALCIUM [Concomitant]
     Dosage: UNK UKN, UNK
     Dates: start: 20110316
  2. KETOPROFEN [Concomitant]
     Dosage: UNK UKN, UNK
     Dates: start: 20110302
  3. PARACETAMOL [Concomitant]
     Dosage: UNK UKN, UNK
     Dates: start: 20101129
  4. SIMVASTATIN [Suspect]
     Dosage: UNK UKN, UNK
     Dates: start: 20101129
  5. ACETAMINOPHEN AND CODEINE PHOSPHATE [Concomitant]
     Dosage: UNK UKN, UNK
     Dates: start: 20101119
  6. OMEPRAZOLE [Concomitant]
     Dosage: UNK UKN, UNK
     Dates: start: 20101209

REACTIONS (1)
  - MOUTH ULCERATION [None]
